FAERS Safety Report 6855595-5 (Version None)
Quarter: 2010Q3

REPORT INFORMATION
  Report Type: 
  Country: None (occurrence: None)
  Receive Date: 20100719
  Receipt Date: 20100628
  Transmission Date: 20110219
  Serious: Yes (Other)
  Sender: FDA-Public Use
  Company Number: US-BAYER-201020286NA

PATIENT
  Age: 19 Year
  Sex: Female

DRUGS (1)
  1. MIRENA [Suspect]
     Indication: CONTRACEPTION
     Route: 015
     Dates: start: 20090301, end: 20100301

REACTIONS (5)
  - ABORTION SPONTANEOUS [None]
  - DEVICE BREAKAGE [None]
  - MENSTRUAL DISORDER [None]
  - PELVIC PAIN [None]
  - PREGNANCY [None]
